FAERS Safety Report 8913867 (Version 2)
Quarter: 2013Q1

REPORT INFORMATION
  Report Type: Report from Study
  Country: DE (occurrence: DE)
  Receive Date: 20121116
  Receipt Date: 20130125
  Transmission Date: 20140127
  Serious: Yes (Hospitalization)
  Sender: FDA-Public Use
  Company Number: DE-BIOGENIDEC-2012BI053430

PATIENT
  Age: 47 Year
  Sex: Male

DRUGS (6)
  1. TYSABRI [Suspect]
     Indication: RELAPSING-REMITTING MULTIPLE SCLEROSIS
     Route: 042
     Dates: start: 20090420
  2. HUMINSULIN BASAL [Concomitant]
     Indication: DIABETES MELLITUS
     Dates: start: 19651201, end: 20120530
  3. BISOPROLOL [Concomitant]
     Indication: HYPERTONIA
     Dates: start: 19860101
  4. MYOCHOLINE [Concomitant]
     Indication: URINARY INCONTINENCE
     Dates: start: 20081016
  5. GILENYA [Concomitant]
     Indication: MULTIPLE SCLEROSIS
     Dates: start: 20111110
  6. HUMINSULIN NORMAL [Concomitant]
     Indication: DIABETES MELLITUS
     Dates: start: 19651201, end: 20120530

REACTIONS (1)
  - Type 1 diabetes mellitus [Recovered/Resolved]
